FAERS Safety Report 24619765 (Version 2)
Quarter: 2025Q2

REPORT INFORMATION
  Report Type: Spontaneous
  Country: BR (occurrence: BR)
  Receive Date: 20241114
  Receipt Date: 20250417
  Transmission Date: 20250717
  Serious: Yes (Hospitalization)
  Sender: BAYER
  Company Number: BR-BAYER-2024A162438

PATIENT
  Age: 49 Year
  Sex: Male
  Weight: 115 kg

DRUGS (3)
  1. GADOBUTROL [Suspect]
     Active Substance: GADOBUTROL
     Indication: Magnetic resonance imaging abdominal
     Route: 042
     Dates: start: 20241030, end: 20241030
  2. GADOBUTROL [Suspect]
     Active Substance: GADOBUTROL
     Indication: Cholangiogram
  3. GADOBUTROL [Suspect]
     Active Substance: GADOBUTROL
     Indication: Abdominal pain upper

REACTIONS (1)
  - Respiratory tract oedema [Recovered/Resolved]

NARRATIVE: CASE EVENT DATE: 20241030
